FAERS Safety Report 6805901-2 (Version None)
Quarter: 2010Q2

REPORT INFORMATION
  Report Type: 
  Country: None (occurrence: None)
  Receive Date: 20100629
  Receipt Date: 20071108
  Transmission Date: 20101027
  Serious: No
  Sender: FDA-Public Use
  Company Number: US-PFIZER INC-2007094668

PATIENT

DRUGS (3)
  1. VIAGRA [Suspect]
  2. ISOSORBIDE DINITRATE [Suspect]
  3. NITROGLYCERIN [Suspect]

REACTIONS (1)
  - DRUG ADMINISTRATION ERROR [None]
